FAERS Safety Report 9250532 (Version 1)
Quarter: 2013Q1

REPORT INFORMATION
  Report Type: Spontaneous
  Country: US (occurrence: None)
  Receive Date: 20130305
  Receipt Date: 20130305
  Transmission Date: 20140127
  Serious: Yes (Other)
  Sender: FDA-Public Use
  Company Number: 163-21880-12061260

PATIENT
  Age: 77 Year
  Sex: Female
  Weight: 63.5 kg

DRUGS (26)
  1. REVLIMID [Suspect]
     Indication: PLASMA CELL MYELOMA
     Dosage: 21 IN 28 D, PO
     Route: 048
     Dates: start: 20110606
  2. NEURONTIN (GABAPENTIN) [Concomitant]
  3. SYNTHROID (LEVOTHYROXINE SODIUM) [Concomitant]
  4. ZOLOFT (SERTRALINE HYDROCHLORIDE) [Concomitant]
  5. MVI (MVI) [Concomitant]
  6. CALCIUM D (OS-CAL) [Concomitant]
  7. VIT D (ERGOCALCIFEROL) [Concomitant]
  8. B COMPLEX (BECOSYM FORTE) [Concomitant]
  9. FISH OIL (FISH OIL) [Concomitant]
  10. ASA (ACETYLSALICYLIC ACID) [Concomitant]
  11. SINGULAIR [Concomitant]
  12. MUCINEX (GUAIFENESIN) [Concomitant]
  13. XANAX (ALPRAZOLAM) [Concomitant]
  14. ZOMETA (ZOLEDRONIC ACID) [Concomitant]
  15. ANTIBIOTIC (ANTIBIOTICS) [Concomitant]
  16. STEROID (ANABOLIC STEROIDS) [Concomitant]
  17. Z PAK (AZITHROMYCIN) [Concomitant]
  18. MEDICATED MOUTHWASH (CARBENOXOLONE SODIUM) [Concomitant]
  19. DICYCLOPAMINE (ALL OTHER THERAPEUTIC PRODUCTS) [Concomitant]
  20. METAMUCIL (METAMUCIL ^PROCTER + GAMBLE^) [Concomitant]
  21. ACTIVA (DICLOFENAC SODIUM) [Concomitant]
  22. ALIGN (BIFIDOBACTERIUM INFANTIS) [Concomitant]
  23. POTASSIUM (POTASSIUM) [Concomitant]
  24. DOXYCYCLINE (DOXYCYCLINE) [Concomitant]
  25. AMPICILLIN (AMPICILLIN) [Concomitant]
  26. DXS (DEXAMETHASONE) [Concomitant]

REACTIONS (2)
  - Thrombocytopenia [None]
  - Neutropenia [None]
